FAERS Safety Report 22000462 (Version 1)
Quarter: 2023Q1

REPORT INFORMATION
  Report Type: Spontaneous
  Country: GR (occurrence: GR)
  Receive Date: 20230216
  Receipt Date: 20230216
  Transmission Date: 20230417
  Serious: Yes (Life-Threatening)
  Sender: FDA-Public Use
  Company Number: None

PATIENT
  Age: 67 Year
  Sex: Female
  Weight: 65 kg

DRUGS (3)
  1. EZETIMIBE\SIMVASTATIN [Suspect]
     Active Substance: EZETIMIBE\SIMVASTATIN
     Dosage: UNK
     Dates: start: 201511, end: 201605
  2. ATORVASTATIN CALCIUM [Suspect]
     Active Substance: ATORVASTATIN CALCIUM
     Dosage: 20 MILLIGRAM
     Dates: start: 201901, end: 202201
  3. PITAVASTATIN [Suspect]
     Active Substance: PITAVASTATIN
     Dosage: 4 MILLIGRAM
     Dates: start: 202211, end: 202212

REACTIONS (2)
  - Gait inability [Unknown]
  - Myalgia [Unknown]

NARRATIVE: CASE EVENT DATE: 20160101
